FAERS Safety Report 13956807 (Version 2)
Quarter: 2017Q4

REPORT INFORMATION
  Report Type: Spontaneous
  Country: US (occurrence: US)
  Receive Date: 20170911
  Receipt Date: 20171108
  Transmission Date: 20180320
  Serious: No
  Sender: FDA-Public Use
  Company Number: US-ASTRAZENECA-2017SE91864

PATIENT
  Sex: Male
  Weight: 117.9 kg

DRUGS (3)
  1. HUMULIN 70/30 [Concomitant]
     Active Substance: INSULIN HUMAN
     Dosage: 30 UNITS, AT NIGHT
  2. BYDUREON [Suspect]
     Active Substance: EXENATIDE
     Indication: TYPE 2 DIABETES MELLITUS
     Route: 058
     Dates: start: 2014
  3. HUMULIN N [Concomitant]
     Active Substance: INSULIN HUMAN
     Dosage: 28 UNITS, EVERY MORNING

REACTIONS (3)
  - Injection site pain [Unknown]
  - Wrong technique in product usage process [Unknown]
  - Product quality issue [Unknown]
